FAERS Safety Report 12626436 (Version 1)
Quarter: 2016Q3

REPORT INFORMATION
  Report Type: Spontaneous
  Country: US (occurrence: US)
  Receive Date: 20160805
  Receipt Date: 20160805
  Transmission Date: 20161109
  Serious: Yes (Other)
  Sender: FDA-Public Use
  Company Number: US-SA-2016SA138161

PATIENT
  Age: 72 Year
  Sex: Male

DRUGS (1)
  1. ALLEGRA ALLERGY [Suspect]
     Active Substance: FEXOFENADINE HYDROCHLORIDE
     Indication: MULTIPLE ALLERGIES
     Dosage: OVER 20 YEARS
     Route: 048

REACTIONS (4)
  - Loss of consciousness [Unknown]
  - Jaw fracture [Unknown]
  - Vein disorder [Unknown]
  - Fall [Unknown]
